FAERS Safety Report 7807140-5 (Version None)
Quarter: 2011Q4

REPORT INFORMATION
  Report Type: 
  Country: None (occurrence: None)
  Receive Date: 20111011
  Receipt Date: 20110929
  Transmission Date: 20120403
  Serious: Yes (Other)
  Sender: FDA-Public Use
  Company Number: PHFR2011GB05656

PATIENT
  Age: 66 Year
  Sex: Male

DRUGS (8)
  1. MOVIPREP [Concomitant]
  2. VENTOLIN [Concomitant]
  3. BECLOMETHASONE DIPROPIONATE [Concomitant]
  4. CARBAMAZEPINE [Suspect]
     Indication: DIZZINESS
     Dates: start: 20080101
  5. FYBOGEL [Concomitant]
  6. LEVOTHYROXINE SODIUM [Concomitant]
  7. LAXIDO [Interacting]
     Indication: CONSTIPATION
     Route: 048
     Dates: start: 20110831, end: 20110914
  8. SIMVASTATIN [Concomitant]
     Dosage: 20 MG, UNK

REACTIONS (2)
  - DRUG INTERACTION [None]
  - DIZZINESS [None]
